FAERS Safety Report 13898848 (Version 2)
Quarter: 2018Q2

REPORT INFORMATION
  Report Type: Report from Study
  Country: US (occurrence: US)
  Receive Date: 20170824
  Receipt Date: 20180410
  Transmission Date: 20180711
  Serious: No
  Sender: FDA-Public Use
  Company Number: PHHY2016US184546

PATIENT

DRUGS (1)
  1. SYSTANE (HYPROMELLOSE 2910 (4000 MPA.S)) [Suspect]
     Active Substance: HYPROMELLOSE 2910 (4000 MPA.S)
     Indication: PRODUCT USED FOR UNKNOWN INDICATION
     Dosage: UNK
     Route: 065

REACTIONS (11)
  - Asthenopia [Unknown]
  - Product packaging confusion [Unknown]
  - Eye pruritus [Unknown]
  - Eye pain [Unknown]
  - Ocular hyperaemia [Unknown]
  - Lacrimation increased [Unknown]
  - Eye irritation [Unknown]
  - Dry eye [Unknown]
  - Sensitivity to weather change [Unknown]
  - Eye discharge [Unknown]
  - Vision blurred [Unknown]
